FAERS Safety Report 16413627 (Version 1)
Quarter: 2019Q2

REPORT INFORMATION
  Report Type: Spontaneous
  Country: NL (occurrence: NL)
  Receive Date: 20190611
  Receipt Date: 20190611
  Transmission Date: 20190711
  Serious: Yes (Hospitalization)
  Sender: FDA-Public Use
  Company Number: NL-TEVA-2019-NL-1060828

PATIENT
  Age: 10 Year
  Sex: Female
  Weight: 35 kg

DRUGS (1)
  1. TRIMETHOPRIM TABLET, 100 MG (MILLIGRAM) [Suspect]
     Active Substance: TRIMETHOPRIM
     Indication: URODYNAMICS MEASUREMENT
     Dosage: 50 MILLIGRAM DAILY; 0.5 P TIMES 2X P. DAY
     Dates: start: 20190514, end: 20190514

REACTIONS (4)
  - Pruritus [Unknown]
  - Pyrexia [Unknown]
  - Erythema [Unknown]
  - Oedema [Unknown]

NARRATIVE: CASE EVENT DATE: 20190514
